FAERS Safety Report 16470716 (Version 1)
Quarter: 2019Q2

REPORT INFORMATION
  Report Type: Spontaneous
  Country: US (occurrence: US)
  Receive Date: 20190624
  Receipt Date: 20190624
  Transmission Date: 20190711
  Serious: No
  Sender: FDA-Public Use
  Company Number: US-CATALYST PHARMACEUTICALS, INC-2019CAT00079

PATIENT
  Age: 62 Year
  Sex: Female
  Weight: 79.82 kg

DRUGS (2)
  1. MANY UNSPECIFIED MEDICATIONS [Concomitant]
  2. FIRDAPSE [Suspect]
     Active Substance: AMIFAMPRIDINE
     Indication: MYASTHENIA GRAVIS
     Dosage: 15 MG, 3X/DAY
     Route: 048
     Dates: start: 201903

REACTIONS (3)
  - Off label use [Not Recovered/Not Resolved]
  - Nasopharyngitis [Recovered/Resolved]
  - Influenza [Recovering/Resolving]

NARRATIVE: CASE EVENT DATE: 201903
